FAERS Safety Report 5904898-7 (Version None)
Quarter: 2008Q4

REPORT INFORMATION
  Report Type: 
  Country: None (occurrence: None)
  Receive Date: 20081001
  Receipt Date: 20080922
  Transmission Date: 20090506
  Serious: Yes (Other)
  Sender: FDA-Public Use
  Company Number: B0538329A

PATIENT
  Age: 10 Year

DRUGS (2)
  1. SEREVENT [Suspect]
     Indication: ASTHMA
     Dosage: 1PUFF TWICE PER DAY
     Route: 055
     Dates: start: 20080101, end: 20080101
  2. POLYDEXA [Concomitant]
     Route: 001

REACTIONS (2)
  - ASTHMA [None]
  - OFF LABEL USE [None]
